FAERS Safety Report 18436725 (Version 1)
Quarter: 2020Q4

REPORT INFORMATION
  Report Type: Report from Study
  Country: CA (occurrence: CA)
  Receive Date: 20201028
  Receipt Date: 20201028
  Transmission Date: 20210114
  Serious: Yes (Other)
  Sender: FDA-Public Use
  Company Number: CA-TAKEDA-2019TUS048261

PATIENT
  Age: 14 Year
  Sex: Female

DRUGS (6)
  1. ACCUTANE [Concomitant]
     Active Substance: ISOTRETINOIN
     Indication: SKIN DISORDER
     Dosage: UNK
  2. VEDOLIZUMAB [Suspect]
     Active Substance: VEDOLIZUMAB
     Indication: COLITIS ULCERATIVE
     Dosage: 300 MILLIGRAM
     Route: 042
     Dates: start: 20190724
  3. PREDNISONE. [Concomitant]
     Active Substance: PREDNISONE
     Dosage: UNK UNK, 1/WEEK
  4. IRON [Concomitant]
     Active Substance: IRON
     Dosage: UNK
  5. APPRILON [Concomitant]
     Active Substance: DOXYCYCLINE
     Dosage: UNK
  6. VEDOLIZUMAB [Suspect]
     Active Substance: VEDOLIZUMAB
     Dosage: 300 MILLIGRAM
     Route: 042

REACTIONS (11)
  - Pain [Unknown]
  - Headache [Unknown]
  - Fatigue [Not Recovered/Not Resolved]
  - Product use issue [Unknown]
  - Haematochezia [Not Recovered/Not Resolved]
  - Nausea [Unknown]
  - Faecal calprotectin increased [Unknown]
  - Diarrhoea [Unknown]
  - C-reactive protein increased [Unknown]
  - Asthenia [Unknown]
  - Frequent bowel movements [Unknown]

NARRATIVE: CASE EVENT DATE: 20190724
